FAERS Safety Report 17540506 (Version 2)
Quarter: 2020Q3

REPORT INFORMATION
  Report Type: Report from Study
  Country: CA (occurrence: CA)
  Receive Date: 20200313
  Receipt Date: 20200828
  Transmission Date: 20201102
  Serious: Yes (Other)
  Sender: FDA-Public Use
  Company Number: CA-JNJFOC-20200304850

PATIENT
  Age: 63 Year
  Sex: Male
  Weight: 109.5 kg

DRUGS (1)
  1. REMICADE [Suspect]
     Active Substance: INFLIXIMAB
     Indication: CROHN^S DISEASE
     Dosage: 32ND INFUSION RECEIVED ON 02?MAR?2020
     Route: 042
     Dates: start: 20150717

REACTIONS (2)
  - Actinic keratosis [Unknown]
  - Basal cell carcinoma [Unknown]

NARRATIVE: CASE EVENT DATE: 2020
